FAERS Safety Report 6403605-1 (Version None)
Quarter: 2009Q4

REPORT INFORMATION
  Report Type: 
  Country: None (occurrence: None)
  Receive Date: 20091016
  Receipt Date: 20091009
  Transmission Date: 20100525
  Serious: Yes (Other)
  Sender: FDA-Public Use
  Company Number: US-JNJFOC-20090907752

PATIENT
  Age: 5 Year
  Sex: Female
  Weight: 19.96 kg

DRUGS (1)
  1. CHILDREN'S TYLENOL PLUS COUGH + RUNNY NOSE CHERRY [Suspect]
     Indication: NASOPHARYNGITIS
     Route: 048

REACTIONS (2)
  - TRANSMISSION OF AN INFECTIOUS AGENT VIA A MEDICINAL PRODUCT [None]
  - URTICARIA [None]
